FAERS Safety Report 6262629-8 (Version None)
Quarter: 2009Q3

REPORT INFORMATION
  Report Type: 
  Country: None (occurrence: None)
  Receive Date: 20090709
  Receipt Date: 20090706
  Transmission Date: 20100115
  Serious: Yes (Hospitalization)
  Sender: FDA-Public Use
  Company Number: FR-BAXTER-2009BH010658

PATIENT
  Age: 69 Year
  Sex: Male

DRUGS (8)
  1. ENDOXAN BAXTER [Suspect]
     Indication: BURKITT'S LYMPHOMA
     Route: 042
     Dates: start: 20090212, end: 20090214
  2. METHOTREXATE GENERIC [Suspect]
     Indication: BURKITT'S LYMPHOMA
     Route: 042
     Dates: start: 20090212, end: 20090212
  3. MABTHERA [Suspect]
     Indication: BURKITT'S LYMPHOMA
     Route: 042
     Dates: start: 20090211, end: 20090211
  4. MABTHERA [Suspect]
     Route: 042
     Dates: start: 20090217, end: 20090217
  5. ONCOVIN [Suspect]
     Indication: BURKITT'S LYMPHOMA
     Route: 042
     Dates: start: 20090212, end: 20090212
  6. ONCOVIN [Suspect]
     Route: 042
     Dates: start: 20090217, end: 20090217
  7. PREDNISOLONE [Suspect]
     Indication: BURKITT'S LYMPHOMA
     Route: 042
     Dates: start: 20090212, end: 20090216
  8. DOXORUBICIN HYDROCHLORIDE [Suspect]
     Indication: BURKITT'S LYMPHOMA
     Route: 042
     Dates: start: 20090213, end: 20090213

REACTIONS (2)
  - FEBRILE BONE MARROW APLASIA [None]
  - SEPSIS [None]
